FAERS Safety Report 5056439-7 (Version None)
Quarter: 2006Q3

REPORT INFORMATION
  Report Type: 
  Country: None (occurrence: None)
  Receive Date: 20060720
  Receipt Date: 20060711
  Transmission Date: 20061208
  Serious: Yes (Other)
  Sender: FDA-Public Use
  Company Number: US-SANOFI-SYNTHELABO-A03200604403

PATIENT
  Sex: Female

DRUGS (3)
  1. TOPAMAX [Concomitant]
     Dosage: UNK
     Route: 048
  2. AXERT [Concomitant]
     Dosage: UNK
     Route: 048
  3. AMBIEN [Suspect]
     Indication: INSOMNIA
     Route: 048
     Dates: end: 20060602

REACTIONS (2)
  - FOOT FRACTURE [None]
  - SLEEP WALKING [None]
